FAERS Safety Report 12342233 (Version 1)
Quarter: 2016Q2

REPORT INFORMATION
  Report Type: Spontaneous
  Country: DE (occurrence: DE)
  Receive Date: 20160506
  Receipt Date: 20160506
  Transmission Date: 20160815
  Serious: Yes (Other)
  Sender: FDA-Public Use
  Company Number: DE-BRISTOL-MYERS SQUIBB COMPANY-BMS-2016-011622

PATIENT
  Age: 7 Decade
  Sex: Female

DRUGS (2)
  1. ELIQUIS [Suspect]
     Active Substance: APIXABAN
     Indication: THROMBOSIS PROPHYLAXIS
     Dosage: 10 MG, BID
     Route: 065
     Dates: start: 20160204
  2. ELIQUIS [Suspect]
     Active Substance: APIXABAN
     Dosage: 5 MG, BID
     Route: 065
     Dates: start: 20160211

REACTIONS (6)
  - Contusion [Unknown]
  - Blood pressure increased [Unknown]
  - Haematoma [Recovering/Resolving]
  - Road traffic accident [Unknown]
  - Peripheral swelling [Unknown]
  - Fracture [Unknown]

NARRATIVE: CASE EVENT DATE: 20160212
